FAERS Safety Report 15777094 (Version 2)
Quarter: 2019Q1

REPORT INFORMATION
  Report Type: Spontaneous
  Country: US (occurrence: US)
  Receive Date: 20181231
  Receipt Date: 20190111
  Transmission Date: 20190417
  Serious: Yes (Other)
  Sender: FDA-Public Use
  Company Number: US-COVIS PHARMA B.V.-2018COV03964

PATIENT
  Sex: Female
  Weight: 77.1 kg

DRUGS (21)
  1. BYETTA [Suspect]
     Active Substance: EXENATIDE
     Indication: TYPE 2 DIABETES MELLITUS
     Dosage: 10 ?G, 2X/DAY BEFORE BREAKFAST AND DINNER
     Route: 058
     Dates: start: 2007, end: 2018
  2. IRON [Concomitant]
     Active Substance: IRON
  3. VITAMIN C [Concomitant]
     Active Substance: ASCORBIC ACID
  4. BYDUREON BCISE [Suspect]
     Active Substance: EXENATIDE
     Indication: TYPE 2 DIABETES MELLITUS
     Dosage: 2 MG, 1X/WEEK
     Route: 058
     Dates: start: 2018
  5. MAGNESIUM [Concomitant]
     Active Substance: MAGNESIUM
  6. CULTURELLE [Concomitant]
     Active Substance: LACTOBACILLUS RHAMNOSUS
  7. STOOL SOFTENER (DOCUSATE) [Concomitant]
     Active Substance: DOCUSATE
  8. LOSARTAN. [Concomitant]
     Active Substance: LOSARTAN
     Dosage: UNK
  9. OMEPRAZOLE MAGNESIUM. [Suspect]
     Active Substance: OMEPRAZOLE MAGNESIUM
     Dosage: 50 MG, 1X/DAY BEFORE DINNER
     Route: 048
  10. ATORVASTATIN [Concomitant]
     Active Substance: ATORVASTATIN
  11. BABY ASPIRIN [Concomitant]
     Active Substance: ASPIRIN
  12. UNSPECIFIED OINTMENTS [Concomitant]
  13. SYNTHROID [Concomitant]
     Active Substance: LEVOTHYROXINE SODIUM
     Dosage: 137 ?G, 1X/DAY
     Route: 048
  14. COQ 10 [Concomitant]
     Active Substance: UBIDECARENONE
  15. CALCIUM [Concomitant]
     Active Substance: CALCIUM
  16. LANTUS [Concomitant]
     Active Substance: INSULIN GLARGINE
     Dosage: 25 IU, 1X/DAY AT NIGHT
     Route: 058
  17. METFORMIN [Concomitant]
     Active Substance: METFORMIN HYDROCHLORIDE
     Dosage: 1000 MG, 2X/DAY
  18. DILTIAZEM HCL ER [Concomitant]
     Active Substance: DILTIAZEM HYDROCHLORIDE
  19. VITAMIN D3 [Concomitant]
     Active Substance: CHOLECALCIFEROL
     Dosage: UNK
  20. ELIQUIS [Suspect]
     Active Substance: APIXABAN
     Indication: ATRIAL FIBRILLATION
     Dosage: 5 MG, 2X/DAY
     Route: 048
  21. VITAMIN B3 [Concomitant]
     Active Substance: NIACIN

REACTIONS (10)
  - Arthritis [Unknown]
  - Eye disorder [Unknown]
  - Rib fracture [Unknown]
  - Skin laceration [Unknown]
  - Irritable bowel syndrome [Unknown]
  - Contusion [Unknown]
  - Haemorrhage [Unknown]
  - Body height decreased [Unknown]
  - Gastrointestinal disorder [Unknown]
  - Osteopenia [Not Recovered/Not Resolved]

NARRATIVE: CASE EVENT DATE: 2018
